FAERS Safety Report 4630655-8 (Version None)
Quarter: 2005Q2

REPORT INFORMATION
  Report Type: 
  Country: None (occurrence: None)
  Receive Date: 20050406
  Receipt Date: 20050330
  Transmission Date: 20051028
  Serious: Yes (Death)
  Sender: FDA-Public Use
  Company Number: A0546782A

PATIENT
  Age: 9 Year
  Sex: Male

DRUGS (1)
  1. SEREVENT [Suspect]
     Indication: ASTHMA
     Dosage: INHALED
     Route: 055
     Dates: start: 19990927

REACTIONS (5)
  - ACUTE RESPIRATORY FAILURE [None]
  - ASTHMA [None]
  - CIRCULATORY COLLAPSE [None]
  - CONDITION AGGRAVATED [None]
  - TRACHEOBRONCHITIS [None]
